FAERS Safety Report 5273678-0 (Version None)
Quarter: 2007Q1

REPORT INFORMATION
  Report Type: 
  Country: None (occurrence: None)
  Receive Date: 20070323
  Receipt Date: 20070312
  Transmission Date: 20070707
  Serious: Yes (Other)
  Sender: FDA-Public Use
  Company Number: US-SANOFI-SYNTHELABO-A03200702091

PATIENT
  Sex: Male

DRUGS (3)
  1. VICODIN [Concomitant]
  2. NORVASC [Concomitant]
     Dosage: UNK
     Route: 065
  3. AMBIEN [Suspect]
     Indication: INSOMNIA
     Route: 048
     Dates: start: 20060521, end: 20060522

REACTIONS (5)
  - AMNESIA [None]
  - HAND FRACTURE [None]
  - JOINT SPRAIN [None]
  - ROAD TRAFFIC ACCIDENT [None]
  - SLEEP WALKING [None]
